FAERS Safety Report 5151107-5 (Version None)
Quarter: 2006Q4

REPORT INFORMATION
  Report Type: 
  Country: None (occurrence: None)
  Receive Date: 20061114
  Receipt Date: 20061114
  Transmission Date: 20070319
  Serious: Yes (Hospitalization)
  Sender: FDA-Public Use
  Company Number: None

PATIENT
  Age: 38 Year
  Sex: Female
  Weight: 61.2356 kg

DRUGS (1)
  1. ACETAMINOPHEN [Suspect]
     Indication: HEADACHE
     Dosage: 2 CAPLETS   PO
     Route: 048
     Dates: start: 20061030, end: 20061101

REACTIONS (8)
  - DIARRHOEA [None]
  - DIZZINESS [None]
  - HYPERTENSION [None]
  - IMPAIRED WORK ABILITY [None]
  - MALAISE [None]
  - NAUSEA [None]
  - VIRAL INFECTION [None]
  - VOMITING [None]
